FAERS Safety Report 8008641-X (Version None)
Quarter: 2011Q4

REPORT INFORMATION
  Report Type: 
  Country: None (occurrence: None)
  Receive Date: 20111227
  Receipt Date: 20111212
  Transmission Date: 20120403
  Serious: Yes (Other)
  Sender: FDA-Public Use
  Company Number: US-ROCHE-783673

PATIENT
  Sex: Male
  Weight: 72.64 kg

DRUGS (1)
  1. ACCUTANE [Suspect]
     Indication: ACNE
     Route: 065
     Dates: start: 20040101, end: 20040601

REACTIONS (4)
  - CROHN'S DISEASE [None]
  - MOOD ALTERED [None]
  - STRESS [None]
  - INFLAMMATORY BOWEL DISEASE [None]
